FAERS Safety Report 15865959 (Version 2)
Quarter: 2020Q1

REPORT INFORMATION
  Report Type: Report from Study
  Country: US (occurrence: US)
  Receive Date: 20190125
  Receipt Date: 20200225
  Transmission Date: 20200409
  Serious: Yes (Death, Hospitalization)
  Sender: FDA-Public Use
  Company Number: US-ROCHE-2240146

PATIENT
  Age: 77 Year
  Sex: Female
  Weight: 46.72 kg

DRUGS (10)
  1. PEGYLATED LIPOSOMAL DOXORUBICIN HYDROCHLORIDE [Suspect]
     Active Substance: DOXORUBICIN HYDROCHLORIDE
     Indication: OVARIAN CANCER
     Dosage: MOST RECENBT DOSE OF LIPOSOMAL DOXORUBICINE PRIOR TO EVENT: 23/DEC/2018
     Route: 042
     Dates: start: 20181206
  2. NIFEDIPINE. [Concomitant]
     Active Substance: NIFEDIPINE
  3. VALSARTAN. [Concomitant]
     Active Substance: VALSARTAN
  4. ALBUTEROL [SALBUTAMOL] [Concomitant]
     Active Substance: ALBUTEROL
  5. FLUTICASONE PROPIONATE. [Concomitant]
     Active Substance: FLUTICASONE PROPIONATE
  6. ONDANSETRON [Concomitant]
     Active Substance: ONDANSETRON
  7. ATEZOLIZUMAB. [Suspect]
     Active Substance: ATEZOLIZUMAB
     Indication: OVARIAN CANCER
     Dosage: MOST RECENBT DOSE OF ATEZOLIZUMAB PRIOR TO EVENT: 20/DEC/2018 (CYCLE1, DAY 15)
     Route: 042
     Dates: start: 20181206, end: 20181220
  8. METFORMIN [Concomitant]
     Active Substance: METFORMIN HYDROCHLORIDE
     Route: 065
  9. ATORVASTATIN [Concomitant]
     Active Substance: ATORVASTATIN
  10. OMEPRAZOLE. [Concomitant]
     Active Substance: OMEPRAZOLE

REACTIONS (1)
  - Small intestinal perforation [Fatal]

NARRATIVE: CASE EVENT DATE: 20181223
